FAERS Safety Report 9537782 (Version 2)
Quarter: 2013Q4

REPORT INFORMATION
  Report Type: Spontaneous
  Country: JP (occurrence: JP)
  Receive Date: 20130919
  Receipt Date: 20131002
  Transmission Date: 20140711
  Serious: Yes (Hospitalization)
  Sender: FDA-Public Use
  Company Number: JP-B.I. PHARMACEUTICALS,INC./RIDGEFIELD-2013-BI-29026NB

PATIENT
  Age: 65 Year
  Sex: Male

DRUGS (1)
  1. MIRAPEX LA [Suspect]
     Dosage: 0.75 MG
     Route: 065

REACTIONS (1)
  - Fracture [Unknown]
